FAERS Safety Report 4943081-9 (Version None)
Quarter: 2006Q1

REPORT INFORMATION
  Report Type: 
  Country: None (occurrence: None)
  Receive Date: 20060314
  Receipt Date: 20050414
  Transmission Date: 20060701
  Serious: Yes (Other)
  Sender: FDA-Public Use
  Company Number: US-MERCK-0504USA02870

PATIENT
  Age: 62 Year
  Sex: Male
  Weight: 77 kg

DRUGS (9)
  1. VIOXX [Suspect]
     Indication: PAIN IN EXTREMITY
     Route: 048
     Dates: start: 20010101, end: 20020101
  2. VIOXX [Suspect]
     Indication: ARTHRITIS
     Route: 048
     Dates: start: 20010101, end: 20020101
  3. INSULIN [Concomitant]
     Route: 065
  4. ASPIRIN [Concomitant]
     Route: 065
  5. PEPCID [Concomitant]
     Route: 065
  6. [THERAPY UNSPECIFIED] [Concomitant]
     Route: 065
  7. ZOCOR [Concomitant]
     Route: 065
  8. PLAVIX [Concomitant]
     Route: 065
     Dates: start: 20020601
  9. PRINIVIL [Concomitant]
     Route: 065
     Dates: start: 20010101, end: 20020101

REACTIONS (1)
  - CEREBROVASCULAR ACCIDENT [None]
